FAERS Safety Report 7433240-8 (Version None)
Quarter: 2011Q2

REPORT INFORMATION
  Report Type: 
  Country: None (occurrence: None)
  Receive Date: 20110422
  Receipt Date: 20110414
  Transmission Date: 20111010
  Serious: Yes (Death, Hospitalization)
  Sender: FDA-Public Use
  Company Number: BE-SANOFI-AVENTIS-2010SA022261

PATIENT
  Age: 83 Year
  Sex: Male
  Weight: 83 kg

DRUGS (12)
  1. DOCETAXEL [Suspect]
     Route: 042
     Dates: start: 20100107, end: 20100107
  2. ASAFLOW [Concomitant]
     Dates: start: 20090408
  3. CORDARONE [Concomitant]
     Dates: start: 20100116
  4. BLINDED THERAPY [Suspect]
     Route: 042
     Dates: start: 20100408, end: 20100408
  5. BLINDED THERAPY [Suspect]
     Route: 042
     Dates: start: 20100107, end: 20100107
  6. DIAMICRON [Concomitant]
     Dates: start: 20090408
  7. COZAAR [Concomitant]
     Dates: start: 20090408
  8. PREDNISONE [Suspect]
     Route: 048
     Dates: start: 20100107, end: 20100408
  9. SINGULAIR [Concomitant]
     Dates: start: 20091112
  10. DOCETAXEL [Suspect]
     Route: 042
     Dates: start: 20100408, end: 20100408
  11. KREDEX [Concomitant]
     Dates: start: 20090408
  12. DEXPANTHENOL [Concomitant]
     Dates: start: 20100106

REACTIONS (2)
  - ESCHERICHIA URINARY TRACT INFECTION [None]
  - MULTI-ORGAN FAILURE [None]
